FAERS Safety Report 19612985 (Version 2)
Quarter: 2021Q3

REPORT INFORMATION
  Report Type: Report from Study
  Country: US (occurrence: US)
  Receive Date: 20210727
  Receipt Date: 20210729
  Transmission Date: 20211014
  Serious: Yes (Hospitalization, Other)
  Sender: FDA-Public Use
  Company Number: US-GILEAD-2021-0541824

PATIENT
  Age: 32 Year
  Sex: Female

DRUGS (3)
  1. AZTREONAM LYSINE [Suspect]
     Active Substance: AZTREONAM LYSINE
     Indication: CYSTIC FIBROSIS LUNG
     Dosage: 1 DOSAGE FORM, 28/28; SALINE AMP ADDED TO THE NEBULAIZER
     Route: 055
     Dates: start: 20190117
  2. TRIKAFTA [Concomitant]
     Active Substance: ELEXACAFTOR\IVACAFTOR\TEZACAFTOR
  3. PULMOZYME [Concomitant]
     Active Substance: DORNASE ALFA

REACTIONS (3)
  - Dyspnoea [Unknown]
  - Pneumonectomy [Recovered/Resolved]
  - Pulmonary haemorrhage [Unknown]

NARRATIVE: CASE EVENT DATE: 201911
